FAERS Safety Report 6527199-5 (Version None)
Quarter: 2010Q1

REPORT INFORMATION
  Report Type: 
  Country: None (occurrence: None)
  Receive Date: 20100104
  Receipt Date: 20100104
  Transmission Date: 20100710
  Serious: Yes (Other)
  Sender: FDA-Public Use
  Company Number: None

PATIENT
  Age: 32 Year
  Sex: Female
  Weight: 60 kg

DRUGS (2)
  1. NUVARING [Suspect]
     Indication: CONTRACEPTION
     Dosage: VAG
     Route: 067
     Dates: start: 20091119, end: 20100103
  2. PRISTIQ [Concomitant]

REACTIONS (13)
  - ABDOMINAL PAIN UPPER [None]
  - BREAST PAIN [None]
  - CONTACT LENS INTOLERANCE [None]
  - DEPRESSION [None]
  - DISEASE RECURRENCE [None]
  - DYSPEPSIA [None]
  - HEADACHE [None]
  - IRRITABILITY [None]
  - MOOD SWINGS [None]
  - MUSCLE SPASMS [None]
  - NAUSEA [None]
  - SKIN DISCOLOURATION [None]
  - WEIGHT INCREASED [None]
